FAERS Safety Report 9492017 (Version 1)
Quarter: 2013Q3

REPORT INFORMATION
  Report Type: Spontaneous
  Country: GB (occurrence: GB)
  Receive Date: 20130830
  Receipt Date: 20130830
  Transmission Date: 20140515
  Serious: Yes (Other)
  Sender: FDA-Public Use
  Company Number: GB-B.I. PHARMACEUTICALS,INC./RIDGEFIELD-2013-BI-26203GD

PATIENT
  Sex: Female

DRUGS (5)
  1. VIRAMUNE [Suspect]
     Indication: HIV INFECTION
  2. LAMIVUDINE [Suspect]
     Indication: HIV INFECTION
  3. ZIDOVUDINE [Suspect]
     Indication: HIV INFECTION
  4. STEROIDS [Suspect]
     Indication: PNEUMOCYSTIS JIROVECII INFECTION
     Dosage: HIGH-DOSE
  5. CO-TRIMOXAZOLE [Concomitant]
     Indication: PNEUMOCYSTIS JIROVECII INFECTION
     Route: 042

REACTIONS (3)
  - Mycobacterium avium complex infection [Unknown]
  - Lung neoplasm [Recovered/Resolved]
  - Immune reconstitution inflammatory syndrome [Unknown]
